FAERS Safety Report 25608378 (Version 1)
Quarter: 2025Q3

REPORT INFORMATION
  Report Type: Spontaneous
  Country: EU (occurrence: EU)
  Receive Date: 20250726
  Receipt Date: 20250726
  Transmission Date: 20251020
  Serious: Yes (Other)
  Sender: ACCORD
  Company Number: None

PATIENT
  Age: 67 Year
  Sex: Male

DRUGS (3)
  1. CARBOPLATIN [Interacting]
     Active Substance: CARBOPLATIN
     Indication: Lung neoplasm malignant
     Dates: start: 20250401, end: 20250516
  2. VINORELBINE [Interacting]
     Active Substance: VINORELBINE TARTRATE
     Indication: Lung neoplasm malignant
     Dates: start: 20250401
  3. IBUPROFEN [Interacting]
     Active Substance: IBUPROFEN
     Indication: Pain
     Dates: start: 20250218, end: 20250408

REACTIONS (1)
  - Acute kidney injury [Recovering/Resolving]

NARRATIVE: CASE EVENT DATE: 20250408
